FAERS Safety Report 6339342-1 (Version None)
Quarter: 2009Q3

REPORT INFORMATION
  Report Type: 
  Country: None (occurrence: None)
  Receive Date: 20090903
  Receipt Date: 20090828
  Transmission Date: 20100115
  Serious: Yes (Hospitalization)
  Sender: FDA-Public Use
  Company Number: B0590903A

PATIENT
  Sex: Female

DRUGS (2)
  1. TOPOTECAN [Suspect]
     Indication: CERVIX CARCINOMA
     Dosage: 1.75MGM2 CYCLIC
     Route: 042
  2. PACLITAXEL [Suspect]
     Indication: CERVIX CARCINOMA
     Dosage: 70MGM2 CYCLIC
     Route: 042

REACTIONS (3)
  - ANAEMIA [None]
  - BLOOD CREATININE INCREASED [None]
  - URINARY TRACT DISORDER [None]
